FAERS Safety Report 23374830 (Version 2)
Quarter: 2024Q1

REPORT INFORMATION
  Report Type: Spontaneous
  Country: US (occurrence: US)
  Receive Date: 20240106
  Receipt Date: 20240115
  Transmission Date: 20240410
  Serious: No
  Sender: FDA-Public Use
  Company Number: US-ABBVIE-5571263

PATIENT
  Age: 44 Year
  Sex: Female

DRUGS (2)
  1. LASTACAFT [Suspect]
     Active Substance: ALCAFTADINE
     Indication: Eye allergy
     Dosage: FREQUENCY TEXT: PM, 1 DROP
     Route: 065
     Dates: start: 20231224
  2. LASTACAFT [Suspect]
     Active Substance: ALCAFTADINE
     Indication: Eye allergy
     Dosage: LAST ADMIN DATE: DEC 2023?FREQUENCY TEXT: AM PM, 1 DROP?STOP DATE TEXT: ONLY APPLIED 2 DOSES
     Route: 065
     Dates: start: 20231208

REACTIONS (10)
  - Conjunctivitis [Recovered/Resolved]
  - Ocular hyperaemia [Recovering/Resolving]
  - Conjunctivitis [Recovering/Resolving]
  - Lacrimation increased [Recovering/Resolving]
  - Eye pain [Recovering/Resolving]
  - Swelling of eyelid [Recovering/Resolving]
  - Photophobia [Recovering/Resolving]
  - Drug hypersensitivity [Recovered/Resolved]
  - Drug hypersensitivity [Recovering/Resolving]
  - Discomfort [Unknown]

NARRATIVE: CASE EVENT DATE: 20231208
